FAERS Safety Report 19543392 (Version 4)
Quarter: 2021Q3

REPORT INFORMATION
  Report Type: Report from Study
  Country: NL (occurrence: NL)
  Receive Date: 20210713
  Receipt Date: 20210830
  Transmission Date: 20211014
  Serious: Yes (Hospitalization, Other)
  Sender: FDA-Public Use
  Company Number: NL-TAKEDA-2021TUS043384

PATIENT
  Sex: Female

DRUGS (12)
  1. ADALIMUMAB [Concomitant]
     Active Substance: ADALIMUMAB
     Dosage: UNK
     Dates: start: 20210416
  2. DIAZEPAM. [Concomitant]
     Active Substance: DIAZEPAM
     Dosage: UNK
  3. BECLOMETASON [Concomitant]
     Active Substance: BECLOMETHASONE DIPROPIONATE
     Dosage: UNK
  4. MAGNESIUMHYDROXIDE [Concomitant]
     Dosage: UNK
  5. VEDOLIZUMAB [Suspect]
     Active Substance: VEDOLIZUMAB
     Indication: INFLAMMATORY BOWEL DISEASE
     Dosage: UNK
     Route: 042
     Dates: start: 20200708, end: 20200722
  6. FLUTICASON [Concomitant]
     Active Substance: FLUTICASONE
     Dosage: UNK
  7. SALBUTAMOL [Concomitant]
     Active Substance: ALBUTEROL
     Dosage: UNK
  8. VASELINE CETOMACROGOL CREAM [Concomitant]
     Dosage: UNK
  9. PARACETAMOL [Concomitant]
     Active Substance: ACETAMINOPHEN
     Dosage: UNK
  10. MOMETASONE [Concomitant]
     Active Substance: MOMETASONE
     Dosage: UNK
  11. VITAMIN B [Concomitant]
     Active Substance: VITAMIN B
     Dosage: UNK
  12. PANTOPRAZOL [Concomitant]
     Active Substance: PANTOPRAZOLE SODIUM
     Dosage: UNK

REACTIONS (3)
  - Abdominal pain [Recovered/Resolved]
  - Otitis media chronic [Recovered/Resolved with Sequelae]
  - Blepharitis [Recovered/Resolved]

NARRATIVE: CASE EVENT DATE: 20200716
